FAERS Safety Report 4394699-6 (Version None)
Quarter: 2004Q3

REPORT INFORMATION
  Report Type: 
  Country: None (occurrence: None)
  Receive Date: 20040712
  Receipt Date: 20040630
  Transmission Date: 20050211
  Serious: Yes (Death)
  Sender: FDA-Public Use
  Company Number: US-MERCK-0407USA00067

PATIENT

DRUGS (2)
  1. ASPIRIN [Suspect]
     Route: 065
  2. VIOXX [Suspect]
     Route: 048

REACTIONS (2)
  - ADVERSE EVENT [None]
  - GASTROINTESTINAL HAEMORRHAGE [None]
